FAERS Safety Report 8829599 (Version 3)
Quarter: 2014Q2

REPORT INFORMATION
  Report Type: Spontaneous
  Country: US (occurrence: US)
  Receive Date: 20121008
  Receipt Date: 20140414
  Transmission Date: 20141212
  Serious: Yes (Other)
  Sender: FDA-Public Use
  Company Number: US-BAYER-2012-103828

PATIENT
  Age: 31 Year
  Sex: Female
  Weight: 158.73 kg

DRUGS (11)
  1. YASMIN [Suspect]
     Dosage: UNK
     Dates: start: 20110419
  2. METFORMIN [Concomitant]
     Indication: DIABETES MELLITUS
     Dosage: UNK
     Dates: start: 2011
  3. SIMVASTATIN [Concomitant]
     Indication: CHOLESTEROSIS
     Dosage: UNK
     Dates: start: 2011
  4. LISINOPRIL [Concomitant]
     Indication: HYPERTENSION
     Dosage: UNK
     Dates: start: 2011
  5. HYDROCHLOROTHIAZIDE [Concomitant]
     Dosage: 25 MG, UNK
  6. NAPROXEN [Concomitant]
     Dosage: 550 MG, UNK
  7. HYDROXYZINE [Concomitant]
     Dosage: 25 MG, UNK
  8. BETAMETHASONE [Concomitant]
  9. VITAMIN D [Concomitant]
     Dosage: 50,000 UNITS
     Route: 048
  10. ATENOLOL [Concomitant]
     Dosage: 25 MG, UNK
     Route: 048
  11. IBUPROFEN [Concomitant]
     Dosage: 800 MG, UNK
     Route: 048

REACTIONS (9)
  - Cholecystitis chronic [None]
  - Cholecystitis [None]
  - Pain [None]
  - General physical health deterioration [None]
  - Injury [None]
  - Emotional distress [None]
  - Pain [None]
  - Anxiety [None]
  - Anhedonia [None]
